FAERS Safety Report 7110770-X (Version None)
Quarter: 2010Q4

REPORT INFORMATION
  Report Type: 
  Country: None (occurrence: None)
  Receive Date: 20101118
  Receipt Date: 20101109
  Transmission Date: 20110411
  Serious: Yes (Hospitalization)
  Sender: FDA-Public Use
  Company Number: B0684894A

PATIENT
  Sex: Male

DRUGS (1)
  1. HYCAMTIN [Suspect]
     Dosage: .5MG PER DAY
     Route: 048
     Dates: start: 20100111, end: 20100115

REACTIONS (5)
  - BALANCE DISORDER [None]
  - DECREASED APPETITE [None]
  - FATIGUE [None]
  - PANCYTOPENIA [None]
  - VOMITING [None]
